FAERS Safety Report 20826123 (Version 1)
Quarter: 2022Q2

REPORT INFORMATION
  Report Type: Spontaneous
  Country: JP (occurrence: JP)
  Receive Date: 20220513
  Receipt Date: 20220513
  Transmission Date: 20220721
  Serious: Yes (Life-Threatening, Hospitalization, Other)
  Sender: FDA-Public Use
  Company Number: JP-SLATE RUN PHARMACEUTICALS-22JP001085

PATIENT

DRUGS (2)
  1. CILOSTAZOL [Suspect]
     Active Substance: CILOSTAZOL
     Indication: Arteriosclerosis coronary artery
     Dosage: 100 MILLIGRAM, QD
     Route: 048
  2. DULOXETINE [Suspect]
     Active Substance: DULOXETINE
     Indication: Osteoarthritis
     Dosage: 40 MILLIGRAM, QD
     Route: 048

REACTIONS (20)
  - Ventricular fibrillation [Recovered/Resolved]
  - Loss of consciousness [Recovered/Resolved]
  - Cardiomegaly [Recovering/Resolving]
  - Pulmonary congestion [Recovered/Resolved]
  - Ejection fraction decreased [Recovered/Resolved]
  - Stress cardiomyopathy [Unknown]
  - Aortic valve incompetence [Not Recovered/Not Resolved]
  - Mitral valve incompetence [Not Recovered/Not Resolved]
  - Tricuspid valve incompetence [Recovering/Resolving]
  - Supraventricular extrasystoles [Recovered/Resolved]
  - Cardiac function test abnormal [Recovered/Resolved]
  - Ventricular extrasystoles [Recovered/Resolved]
  - Cardiac failure [Unknown]
  - Electrocardiogram QT prolonged [Recovered/Resolved]
  - Torsade de pointes [Recovered/Resolved]
  - Blood potassium decreased [Recovered/Resolved]
  - Off label use [Recovered/Resolved]
  - Hypertension [Unknown]
  - Contraindicated product prescribed [Recovered/Resolved]
  - Dizziness [Recovered/Resolved]
